FAERS Safety Report 6819209-2 (Version None)
Quarter: 2010Q2

REPORT INFORMATION
  Report Type: 
  Country: None (occurrence: None)
  Receive Date: 20100630
  Receipt Date: 20100616
  Transmission Date: 20101027
  Serious: Yes (Hospitalization, Other)
  Sender: FDA-Public Use
  Company Number: A-US2010-35323

PATIENT
  Age: 40 Year
  Sex: Female

DRUGS (5)
  1. TRACLEER [Suspect]
     Indication: PULMONARY ARTERIAL HYPERTENSION
     Dosage: 125 MG, QAM, ORAL;  62.5 MG, QPM, ORAL; 62.5 MG, BID, ORAL
     Route: 048
     Dates: start: 20020101, end: 20081001
  2. TRACLEER [Suspect]
     Indication: PULMONARY ARTERIAL HYPERTENSION
     Dosage: 125 MG, QAM, ORAL;  62.5 MG, QPM, ORAL; 62.5 MG, BID, ORAL
     Route: 048
     Dates: start: 20081002, end: 20100303
  3. TRACLEER [Suspect]
     Indication: PULMONARY ARTERIAL HYPERTENSION
     Dosage: 125 MG, QAM, ORAL;  62.5 MG, QPM, ORAL; 62.5 MG, BID, ORAL
     Route: 048
     Dates: start: 20081002, end: 20100303
  4. TRACLEER [Suspect]
     Indication: PULMONARY ARTERIAL HYPERTENSION
     Dosage: 125 MG, QAM, ORAL;  62.5 MG, QPM, ORAL; 62.5 MG, BID, ORAL
     Route: 048
     Dates: start: 20100406, end: 20100609
  5. COUMADIN [Concomitant]

REACTIONS (4)
  - ALANINE AMINOTRANSFERASE INCREASED [None]
  - ASPARTATE AMINOTRANSFERASE INCREASED [None]
  - GASTRIC BYPASS [None]
  - WEIGHT INCREASED [None]
